FAERS Safety Report 5304549-9 (Version None)
Quarter: 2007Q2

REPORT INFORMATION
  Report Type: 
  Country: None (occurrence: None)
  Receive Date: 20070419
  Receipt Date: 20070419
  Transmission Date: 20071010
  Serious: Yes (Disabling)
  Sender: FDA-Public Use
  Company Number: None

PATIENT
  Age: 43 Year
  Sex: Female
  Weight: 55 kg

DRUGS (1)
  1. LEVAQUIN [Suspect]
     Indication: LUNG INFILTRATION
     Dosage: 500 MG Q 24 HRS IV
     Route: 042
     Dates: start: 20070417, end: 20070417

REACTIONS (4)
  - INFUSION SITE ERYTHEMA [None]
  - INFUSION SITE PAIN [None]
  - PRURITUS [None]
  - URTICARIA [None]
